FAERS Safety Report 11493671 (Version 1)
Quarter: 2015Q3

REPORT INFORMATION
  Report Type: Spontaneous
  Country: ZA (occurrence: ZA)
  Receive Date: 20150911
  Receipt Date: 20150911
  Transmission Date: 20151125
  Serious: Yes (Hospitalization)
  Sender: FDA-Public Use
  Company Number: ZA-BAYER-2015-414271

PATIENT
  Sex: Male

DRUGS (2)
  1. KOGENATE FS [Suspect]
     Active Substance: ANTIHEMOPHILIC FACTOR, HUMAN RECOMBINANT
     Indication: FACTOR VIII DEFICIENCY
     Dosage: 1000 IU, UNKNOWN
     Route: 042
     Dates: start: 201505
  2. PROVIGIL [Suspect]
     Active Substance: MODAFINIL
     Indication: MUSCLE DISORDER
     Dosage: UNK
     Dates: start: 201502

REACTIONS (6)
  - Chest pain [None]
  - Tachycardia [None]
  - Hypertension [None]
  - Haemorrhage [None]
  - Depression [None]
  - Insomnia [None]

NARRATIVE: CASE EVENT DATE: 201505
